FAERS Safety Report 26204582 (Version 1)
Quarter: 2025Q4

REPORT INFORMATION
  Report Type: Other
  Country: KR (occurrence: KR)
  Receive Date: 20251227
  Receipt Date: 20251227
  Transmission Date: 20260118
  Serious: Yes (Death, Hospitalization, Other)
  Sender: ANI
  Company Number: KR-ANIPHARMA-035613

PATIENT
  Age: 80 Year

DRUGS (2)
  1. CLARITHROMYCIN [Suspect]
     Active Substance: CLARITHROMYCIN
     Indication: Helicobacter infection
     Dosage: FIRST-LINE ERADICATION THERAPY
  2. AMOXICILLIN [Concomitant]
     Active Substance: AMOXICILLIN
     Indication: Helicobacter infection
     Dosage: FIRST-LINE ERADICATION THERAPY

REACTIONS (1)
  - Toxic epidermal necrolysis [Fatal]
